FAERS Safety Report 19306460 (Version 1)
Quarter: 2021Q2

REPORT INFORMATION
  Report Type: Spontaneous
  Country: US (occurrence: US)
  Receive Date: 20210525
  Receipt Date: 20210525
  Transmission Date: 20210717
  Serious: Yes (Hospitalization)
  Sender: FDA-Public Use
  Company Number: None

PATIENT
  Age: 58 Year
  Sex: Female
  Weight: 57.15 kg

DRUGS (7)
  1. CRESTOR [Concomitant]
     Active Substance: ROSUVASTATIN CALCIUM
  2. ATENOLOL. [Concomitant]
     Active Substance: ATENOLOL
  3. COZAAR [Concomitant]
     Active Substance: LOSARTAN POTASSIUM
  4. HUMIRA [Suspect]
     Active Substance: ADALIMUMAB
     Indication: PSORIATIC ARTHROPATHY
     Dosage: ?          QUANTITY:1 INJECTION(S);OTHER FREQUENCY:EVERY 2 WEEK;?
     Route: 030
     Dates: start: 20210311, end: 20210422
  5. CALTRATE [Concomitant]
     Active Substance: CALCIUM CARBONATE
  6. NURTEC ODT [Concomitant]
     Active Substance: RIMEGEPANT SULFATE
  7. COENZYME Q10 [Concomitant]
     Active Substance: DIETARY SUPPLEMENT\UBIDECARENONE

REACTIONS (1)
  - Appendicitis [None]

NARRATIVE: CASE EVENT DATE: 20210429
